FAERS Safety Report 6526504-3 (Version None)
Quarter: 2009Q4

REPORT INFORMATION
  Report Type: 
  Country: None (occurrence: None)
  Receive Date: 20091228
  Receipt Date: 20091222
  Transmission Date: 20100525
  Serious: Yes (Other)
  Sender: FDA-Public Use
  Company Number: SPV1-2009-02491

PATIENT
  Age: 65 Year
  Sex: Female
  Weight: 59 kg

DRUGS (2)
  1. PENTASA [Suspect]
     Indication: COLITIS
     Dosage: 1000 MG, 4X/DAY:QID, ORAL
     Route: 048
     Dates: start: 20091207, end: 20091207
  2. ANTIHYPERTENSIVES [Concomitant]

REACTIONS (1)
  - SWOLLEN TONGUE [None]
